FAERS Safety Report 23701254 (Version 2)
Quarter: 2024Q2

REPORT INFORMATION
  Report Type: Spontaneous
  Country: JP (occurrence: JP)
  Receive Date: 20240403
  Receipt Date: 20240419
  Transmission Date: 20240716
  Serious: Yes (Hospitalization, Other)
  Sender: FDA-Public Use
  Company Number: JP-UPSHER-SMITH LABORATORIES, LLC-2024USL00287

PATIENT
  Age: 77 Year
  Sex: Male

DRUGS (15)
  1. AMIODARONE HYDROCHLORIDE [Suspect]
     Active Substance: AMIODARONE HYDROCHLORIDE
     Dosage: UNK
     Route: 048
  2. AMIODARONE HYDROCHLORIDE [Suspect]
     Active Substance: AMIODARONE HYDROCHLORIDE
     Dosage: UNK [SAWAI]
     Route: 048
     Dates: start: 20240223, end: 20240310
  3. AMIODARONE HYDROCHLORIDE [Suspect]
     Active Substance: AMIODARONE HYDROCHLORIDE
     Dosage: 100 MG PER DAY (DOSE DECREASE)
     Route: 048
     Dates: start: 20240311
  4. ASPIRIN [Concomitant]
     Active Substance: ASPIRIN
  5. LANSOPRAZOLE OD TABLETS [Concomitant]
  6. ROSUVASTATIN CALCIUM [Concomitant]
     Active Substance: ROSUVASTATIN CALCIUM
  7. AMBROXOL HYDROCHLORIDE SUSTAINED-RELEASE OD [Concomitant]
  8. WARFARIN [Concomitant]
     Active Substance: WARFARIN
  9. MIDODRINE HYDROCHLORIDE [Concomitant]
     Active Substance: MIDODRINE HYDROCHLORIDE
  10. AMEZINIUM METILSULFATE [Concomitant]
     Active Substance: AMEZINIUM METILSULFATE
  11. SODIUM FERROUS CITRATE [Concomitant]
     Active Substance: SODIUM FERROUS CITRATE
  12. VEMAS COMBINATION TAB [Concomitant]
  13. CALCIUM SENNOSIDES [Concomitant]
     Active Substance: SENNOSIDES
  14. DROXIDOPA [Concomitant]
     Active Substance: DROXIDOPA
  15. LIDOCAINE TAPES [Concomitant]

REACTIONS (2)
  - Cardiac failure [Unknown]
  - Hepatic function abnormal [Recovering/Resolving]

NARRATIVE: CASE EVENT DATE: 20240213
